FAERS Safety Report 5898194-4 (Version None)
Quarter: 2008Q3

REPORT INFORMATION
  Report Type: 
  Country: None (occurrence: None)
  Receive Date: 20080925
  Receipt Date: 20080912
  Transmission Date: 20090109
  Serious: Yes (Hospitalization)
  Sender: FDA-Public Use
  Company Number: DE-ELI_LILLY_AND_COMPANY-DE200808004530

PATIENT
  Sex: Male
  Weight: 79 kg

DRUGS (3)
  1. PEMETREXED [Suspect]
     Indication: NON-SMALL CELL LUNG CANCER
     Dosage: 500 MG/M2, DAY 1 EVERY 21 DAYS
     Dates: start: 20080723
  2. DEXAMETHASONE [Concomitant]
     Indication: PROPHYLAXIS
     Dosage: 8 MG, UNK
     Route: 042
     Dates: start: 20080723, end: 20080813
  3. KEVATRIL [Concomitant]
     Indication: PROPHYLAXIS
     Dosage: 1 D/F, AMP
     Dates: start: 20080723, end: 20080813

REACTIONS (5)
  - DIARRHOEA [None]
  - ENTERITIS [None]
  - GENERAL PHYSICAL HEALTH DETERIORATION [None]
  - ILEUS [None]
  - LEUKOPENIA [None]
